FAERS Safety Report 12328211 (Version 1)
Quarter: 2016Q2

REPORT INFORMATION
  Report Type: Spontaneous
  Country: US (occurrence: US)
  Receive Date: 20160503
  Receipt Date: 20160503
  Transmission Date: 20160815
  Serious: No
  Sender: FDA-Public Use
  Company Number: US-PERRIGO-16US014268

PATIENT
  Sex: Male

DRUGS (1)
  1. NAPROXEN SODIUM-PSEUDOEPHEDRINE HYDROCHLORIDE [Suspect]
     Active Substance: NAPROXEN SODIUM\PSEUDOEPHEDRINE HYDROCHLORIDE
     Indication: NASOPHARYNGITIS
     Dosage: TWO TABLETS, SINGLE
     Route: 048
     Dates: start: 20160311, end: 20160311

REACTIONS (1)
  - Incorrect dose administered [Unknown]

NARRATIVE: CASE EVENT DATE: 20160311
